FAERS Safety Report 6293528-3 (Version None)
Quarter: 2009Q3

REPORT INFORMATION
  Report Type: 
  Country: None (occurrence: None)
  Receive Date: 20090803
  Receipt Date: 20070530
  Transmission Date: 20100115
  Serious: No
  Sender: FDA-Public Use
  Company Number: US-ASTRAZENECA-2006UW12096

PATIENT
  Age: 16716 Day
  Sex: Male
  Weight: 99.8 kg

DRUGS (8)
  1. SEROQUEL [Suspect]
     Indication: PSYCHOTIC DISORDER
     Route: 048
     Dates: start: 20010102
  2. SEROQUEL [Suspect]
     Route: 048
  3. ZYPREXA [Suspect]
  4. HALDOL [Concomitant]
  5. RISPERDAL [Concomitant]
  6. REMERON [Concomitant]
     Indication: DEPRESSION
     Route: 048
     Dates: start: 20060626
  7. REMERON [Concomitant]
     Indication: SLEEP DISORDER
     Route: 048
     Dates: start: 20060626
  8. COGENTIN [Concomitant]
     Route: 048
     Dates: start: 20040920

REACTIONS (1)
  - DIABETES MELLITUS [None]
